FAERS Safety Report 16056193 (Version 1)
Quarter: 2019Q1

REPORT INFORMATION
  Report Type: Spontaneous
  Country: DE (occurrence: DE)
  Receive Date: 20190311
  Receipt Date: 20190311
  Transmission Date: 20190418
  Serious: Yes (Other)
  Sender: FDA-Public Use
  Company Number: DE-SHILPA MEDICARE LIMITED-SML-DE-2019-00085

PATIENT
  Age: 25 Year
  Sex: Male

DRUGS (8)
  1. IMATINIB, UNKNOWN [Suspect]
     Active Substance: IMATINIB
     Indication: ROSAI-DORFMAN SYNDROME
     Dosage: 400 MILLIGRAM, QD, 4 DOSES
     Route: 065
  2. IMATINIB, UNKNOWN [Suspect]
     Active Substance: IMATINIB
     Indication: ROSAI-DORFMAN SYNDROME
     Dosage: 400 MILLIGRAM, QD, 4 DOSES
     Route: 065
  3. RITUXIMAB. [Suspect]
     Active Substance: RITUXIMAB
     Indication: ROSAI-DORFMAN SYNDROME
     Dosage: 375 MILLIGRAM/SQ. METER, ONCE IN 3 WEEKS
     Route: 065
  4. IMATINIB, UNKNOWN [Suspect]
     Active Substance: IMATINIB
     Indication: LYMPHADENOPATHY
  5. IMATINIB, UNKNOWN [Suspect]
     Active Substance: IMATINIB
     Indication: LYMPHADENOPATHY
  6. CLOFARABINE. [Suspect]
     Active Substance: CLOFARABINE
     Indication: LYMPHADENOPATHY
  7. CLOFARABINE. [Suspect]
     Active Substance: CLOFARABINE
     Indication: ROSAI-DORFMAN SYNDROME
     Dosage: SALVAGE THERAPY - 25 MG/M2 /DAY X 5 DAYS/CYCLE EVERY 28 DAYS
     Route: 065
  8. RITUXIMAB. [Suspect]
     Active Substance: RITUXIMAB
     Indication: LYMPHADENOPATHY

REACTIONS (7)
  - Drug ineffective [Unknown]
  - Pancytopenia [Unknown]
  - Bone marrow infiltration [Unknown]
  - Neutropenia [Recovered/Resolved]
  - Disease progression [Unknown]
  - Thrombocytopenia [Recovered/Resolved]
  - Renal disorder [Unknown]
